FAERS Safety Report 4851234-3 (Version None)
Quarter: 2005Q4

REPORT INFORMATION
  Report Type: 
  Country: None (occurrence: None)
  Receive Date: 20051207
  Receipt Date: 20051125
  Transmission Date: 20060501
  Serious: Yes (Hospitalization)
  Sender: FDA-Public Use
  Company Number: B0402281A

PATIENT
  Age: 60 Year
  Sex: Female

DRUGS (4)
  1. FLOVENT [Suspect]
     Indication: RHINITIS ALLERGIC
     Dosage: NASAL SPRAY
  2. THYROXINE SODIUM [Concomitant]
  3. LANSOPRAZOLE [Concomitant]
  4. ATROPINE SO4+DIPHENOX.HCI [Concomitant]

REACTIONS (13)
  - ADRENAL INSUFFICIENCY [None]
  - ANOREXIA [None]
  - ASTHENIA [None]
  - BLOOD GLUCOSE INCREASED [None]
  - BLOOD UREA INCREASED [None]
  - DIARRHOEA [None]
  - FATIGUE [None]
  - INFLUENZA [None]
  - NAUSEA [None]
  - PALLOR [None]
  - TACHYCARDIA [None]
  - VOMITING [None]
  - WEIGHT DECREASED [None]
